FAERS Safety Report 25283121 (Version 1)
Quarter: 2025Q2

REPORT INFORMATION
  Report Type: Spontaneous
  Country: CN (occurrence: CN)
  Receive Date: 20250508
  Receipt Date: 20250508
  Transmission Date: 20250717
  Serious: Yes (Other)
  Sender: BAYER HEALTHCARE PHARMACEUTICALS INC.
  Company Number: CN-BAYER-2025A062293

PATIENT
  Age: 49 Year
  Sex: Male
  Weight: 65 kg

DRUGS (2)
  1. ULTRAVIST [Suspect]
     Active Substance: IOPROMIDE
     Indication: Computerised tomogram heart
     Route: 042
     Dates: start: 20250504, end: 20250504
  2. ULTRAVIST [Suspect]
     Active Substance: IOPROMIDE
     Indication: Chest discomfort

REACTIONS (6)
  - Pain [Recovering/Resolving]
  - Altered state of consciousness [Recovered/Resolved]
  - Blood pressure decreased [Recovered/Resolved]
  - Hyperhidrosis [None]
  - Dysstasia [None]
  - Gait inability [None]

NARRATIVE: CASE EVENT DATE: 20250504
